FAERS Safety Report 12288846 (Version 1)
Quarter: 2016Q2

REPORT INFORMATION
  Report Type: Spontaneous
  Country: US (occurrence: US)
  Receive Date: 20160421
  Receipt Date: 20160421
  Transmission Date: 20160815
  Serious: No
  Sender: FDA-Public Use
  Company Number: US-JNJFOC-20160308179

PATIENT
  Sex: Female

DRUGS (1)
  1. NIZORAL A-D [Suspect]
     Active Substance: KETOCONAZOLE
     Indication: PSORIASIS
     Route: 061

REACTIONS (3)
  - Product use issue [Unknown]
  - Therapeutic response unexpected [Unknown]
  - Off label use [Unknown]
